FAERS Safety Report 12564333 (Version 2)
Quarter: 2016Q3

REPORT INFORMATION
  Report Type: Spontaneous
  Country: US (occurrence: US)
  Receive Date: 20160718
  Receipt Date: 20160722
  Transmission Date: 20161109
  Serious: No
  Sender: FDA-Public Use
  Company Number: US-SHIRE-US201607752

PATIENT
  Age: 26 Year
  Sex: Female
  Weight: 74.83 kg

DRUGS (7)
  1. VYVANSE [Suspect]
     Active Substance: LISDEXAMFETAMINE DIMESYLATE
     Dosage: 60 MG, 1X/DAY:QD
     Route: 048
     Dates: start: 2016
  2. LORAZEPAM. [Concomitant]
     Active Substance: LORAZEPAM
     Indication: ANXIETY
     Dosage: 0.05 MG, AS REQ^D
     Route: 065
     Dates: start: 201601
  3. ADDERALL [Concomitant]
     Active Substance: AMPHETAMINE ASPARTATE\AMPHETAMINE SULFATE\DEXTROAMPHETAMINE SACCHARATE\DEXTROAMPHETAMINE SULFATE
     Indication: SLEEP DISORDER
     Dosage: 5 MG, UNKNOWN (ON THE DAYS SHE WOKE UP LATE)
     Route: 048
     Dates: start: 2016
  4. BENADRYL [Suspect]
     Active Substance: DIPHENHYDRAMINE HYDROCHLORIDE
     Indication: PRODUCT USED FOR UNKNOWN INDICATION
     Dosage: TWO 25 OR 50 MG PILLS, UNKNOWN
     Route: 065
     Dates: start: 20160621, end: 20160621
  5. VYVANSE [Suspect]
     Active Substance: LISDEXAMFETAMINE DIMESYLATE
     Dosage: 30 MG, 2X/DAY:BID (30 MG IN THE AM, 30 MG A FEW HOURS LATER)
     Route: 048
     Dates: start: 2016, end: 2016
  6. VYVANSE [Suspect]
     Active Substance: LISDEXAMFETAMINE DIMESYLATE
     Indication: ATTENTION DEFICIT/HYPERACTIVITY DISORDER
     Dosage: 30 MG, 1X/DAY:QD
     Route: 048
     Dates: start: 201601, end: 2016
  7. ZOLOFT [Concomitant]
     Active Substance: SERTRALINE HYDROCHLORIDE
     Indication: ROUTINE HEALTH MAINTENANCE
     Dosage: 100 MG, 1X/DAY:QD
     Route: 048
     Dates: start: 201601

REACTIONS (11)
  - Therapeutic response increased [Not Recovered/Not Resolved]
  - Drug ineffective [Not Recovered/Not Resolved]
  - Paranoia [Not Recovered/Not Resolved]
  - Sneezing [Not Recovered/Not Resolved]
  - Psychomotor hyperactivity [Unknown]
  - Decreased appetite [Unknown]
  - Insomnia [Unknown]
  - Inappropriate schedule of drug administration [Recovered/Resolved]
  - Feeling abnormal [Not Recovered/Not Resolved]
  - Disturbance in attention [Not Recovered/Not Resolved]
  - Product quality issue [Unknown]

NARRATIVE: CASE EVENT DATE: 2016
